FAERS Safety Report 12896397 (Version 1)
Quarter: 2016Q4

REPORT INFORMATION
  Report Type: Spontaneous
  Country: US (occurrence: US)
  Receive Date: 20161028
  Receipt Date: 20161028
  Transmission Date: 20170207
  Serious: Yes (Death)
  Sender: FDA-Public Use
  Company Number: None

PATIENT
  Age: 64 Year
  Sex: Male

DRUGS (2)
  1. GAMMAGARD [Suspect]
     Active Substance: HUMAN IMMUNOGLOBULIN G
     Indication: POLYMYOSITIS
     Dosage: LIQ 30GM/300ML SDV 140 GRMS EVY 4 WKS INFUSE
     Dates: start: 20160429, end: 20161021
  2. GAMMAGARD [Suspect]
     Active Substance: HUMAN IMMUNOGLOBULIN G
     Dosage: LIQ 10GM/100ML SDV 140 GRMS EVY 4 WKS INFUSE
     Dates: start: 20160429, end: 20161021

REACTIONS (2)
  - Coronary artery bypass [None]
  - Disease complication [None]

NARRATIVE: CASE EVENT DATE: 201610
